FAERS Safety Report 10590111 (Version 1)
Quarter: 2014Q4

REPORT INFORMATION
  Report Type: Spontaneous
  Country: US (occurrence: None)
  Receive Date: 20141117
  Receipt Date: 20141117
  Transmission Date: 20150529
  Serious: Yes (Life-Threatening, Disabling, Other)
  Sender: FDA-Public Use
  Company Number: None

PATIENT
  Age: 15 Year
  Sex: Female
  Weight: 55.34 kg

DRUGS (1)
  1. CIPROFLOXEN 500MG CIPROFLOXACIN [Suspect]
     Active Substance: CIPROFLOXACIN
     Indication: ROOT CANAL INFECTION
     Dosage: 500MG TWICE DAILY TAKEN BY MOUTH
     Route: 048
     Dates: start: 20140203, end: 20140217

REACTIONS (8)
  - Hypothalamo-pituitary disorder [None]
  - Anti-thyroid antibody positive [None]
  - Gastrointestinal disorder [None]
  - Tic [None]
  - Unevaluable event [None]
  - Anxiety [None]
  - Insomnia [None]
  - Hallucination [None]

NARRATIVE: CASE EVENT DATE: 20140202
